FAERS Safety Report 8485774-5 (Version None)
Quarter: 2012Q3

REPORT INFORMATION
  Report Type: 
  Country: None (occurrence: None)
  Receive Date: 20120703
  Receipt Date: 20120627
  Transmission Date: 20120928
  Serious: Yes (Hospitalization, Other)
  Sender: FDA-Public Use
  Company Number: US-PFIZER INC-2010138654

PATIENT
  Sex: Male
  Weight: 61.7 kg

DRUGS (16)
  1. BAPINEUZUMAB [Suspect]
     Dosage: UNK MG/KG, SINGLE
     Route: 042
     Dates: start: 20100726, end: 20100726
  2. ZYPREXA [Concomitant]
     Indication: MENTAL STATUS CHANGES
     Dosage: UNK
     Dates: start: 20101022, end: 20101023
  3. CITALOPRAM [Concomitant]
     Indication: ANTIDEPRESSANT THERAPY
     Dosage: 20 MG, UNK
     Route: 048
     Dates: start: 20100201, end: 20100610
  4. OMEPRAZOLE [Concomitant]
     Indication: GASTROOESOPHAGEAL REFLUX DISEASE
     Dosage: 40 MG DAILLY
     Route: 048
     Dates: start: 20060101
  5. VITAMIN D [Concomitant]
     Indication: NUTRITIONAL SUPPORT
     Dosage: 1000 UNITS DAILY
     Route: 048
     Dates: start: 20060615
  6. CITALOPRAM [Concomitant]
     Dosage: 30 MG, DAILY
     Route: 048
     Dates: start: 20100610
  7. XANAX [Suspect]
     Indication: AGITATION
  8. ENOXAPARIN SODIUM [Concomitant]
     Indication: PROPHYLAXIS
     Dosage: UNK
     Dates: start: 20101021, end: 20101023
  9. XANAX [Suspect]
     Indication: SEDATION
     Dosage: 0.5 MG, TID AS NEEDED
     Route: 048
     Dates: start: 20101017, end: 20101025
  10. MULTI-VITAMINS [Concomitant]
     Indication: NUTRITIONAL SUPPORT
     Dosage: 1 TABLET DAILY
     Route: 048
     Dates: start: 20060615
  11. NAMENDA [Concomitant]
     Indication: DEMENTIA ALZHEIMER'S TYPE
     Dosage: 10 MG, 2X/DAY
     Route: 048
     Dates: start: 20080315
  12. EXELON [Concomitant]
     Indication: DEMENTIA ALZHEIMER'S TYPE
     Dosage: 9.6 MG, 1X/DAY
     Route: 062
     Dates: start: 20071215
  13. FOLIC ACID [Concomitant]
     Indication: NUTRITIONAL SUPPORT
     Dosage: 400 MCG DAILY
     Route: 048
     Dates: start: 20060615
  14. BAPINEUZUMAB [Suspect]
     Indication: DEMENTIA ALZHEIMER'S TYPE
     Dosage: UNK MG/KG, SINGLE
     Route: 042
     Dates: start: 20100426, end: 20100426
  15. XANAX [Suspect]
     Indication: RESTLESSNESS
  16. CALCIUM [Concomitant]
     Indication: NUTRITIONAL SUPPORT
     Dosage: 600 MG DAILY
     Route: 048
     Dates: start: 20060615

REACTIONS (4)
  - AGITATION [None]
  - BALANCE DISORDER [None]
  - MENTAL STATUS CHANGES [None]
  - FALL [None]
